FAERS Safety Report 7606160-3 (Version None)
Quarter: 2011Q3

REPORT INFORMATION
  Report Type: 
  Country: None (occurrence: None)
  Receive Date: 20110713
  Receipt Date: 20110622
  Transmission Date: 20111222
  Serious: Yes (Other)
  Sender: FDA-Public Use
  Company Number: US-BAYER-200829340NA

PATIENT
  Sex: Female
  Weight: 132 kg

DRUGS (56)
  1. OMNISCAN [Suspect]
     Indication: NUCLEAR MAGNETIC RESONANCE IMAGING
     Dosage: UNK
     Dates: start: 20000816, end: 20000816
  2. MULTIHANCE [Suspect]
     Indication: NUCLEAR MAGNETIC RESONANCE IMAGING
  3. ALTACE [Concomitant]
  4. ACETAMINOPHEN [Concomitant]
  5. SINGULAIR [Concomitant]
  6. PHENERGAN HCL [Concomitant]
  7. DIGOXIN [Concomitant]
  8. PLAVIX [Concomitant]
  9. SEROQUEL [Concomitant]
  10. ALDACTONE [POTASSIUM CANRENOATE] [Concomitant]
  11. VICODIN [Concomitant]
  12. LIDODERM [Concomitant]
  13. COUMADIN [Concomitant]
  14. HYDROCODONE [Concomitant]
  15. METOLAZONE [Concomitant]
  16. LIPITOR [Concomitant]
  17. IMITREX [Concomitant]
  18. OPTIMARK [Suspect]
     Indication: NUCLEAR MAGNETIC RESONANCE IMAGING
  19. SINGULAIR [Concomitant]
  20. NEURONTIN [Concomitant]
  21. ONE-A-DAY [MINERALS NOS,VITAMINS NOS] [Concomitant]
  22. VAGIFEM [Concomitant]
  23. AMITRIPTYLINE HCL [Concomitant]
  24. MAGNESIUM OXIDE [Concomitant]
  25. SILDENAFIL CITRATE [Concomitant]
  26. EFFEXOR XR [Concomitant]
  27. MAGNEVIST [Suspect]
     Indication: NUCLEAR MAGNETIC RESONANCE IMAGING
     Dosage: UNK
     Dates: start: 20040823, end: 20040823
  28. PROTONIX [Concomitant]
  29. ELAVIL [Concomitant]
  30. METOPROLOL SUCCINATE [Concomitant]
  31. PREDNISONE [Concomitant]
  32. IMITREX [Concomitant]
  33. SPIRONOLACTONE [Concomitant]
  34. AMIODARONE HCL [Concomitant]
  35. ZOLOFT [Concomitant]
  36. XANAX [Concomitant]
  37. PROHANCE [Suspect]
     Indication: NUCLEAR MAGNETIC RESONANCE IMAGING
  38. ADVAIR DISKUS 100/50 [Concomitant]
  39. LASIX [Concomitant]
  40. TEMAZEPAM [Concomitant]
  41. AMBIEN [Concomitant]
  42. METOPROLOL SUCCINATE [Concomitant]
  43. PROTONIX [Concomitant]
  44. LEVOTHYROXINE SODIUM [Concomitant]
  45. NOVOLOG [Concomitant]
  46. VITAMIN TAB [Concomitant]
  47. HYZAAR [Concomitant]
  48. FLECAINIDE ACETATE [Concomitant]
  49. NOVOLIN [INSULIN] [Concomitant]
  50. OXYCONTIN [Concomitant]
  51. MEXILETINE HYDROCHLORIDE [Concomitant]
  52. NEURONTIN [Concomitant]
  53. LASIX [Concomitant]
  54. AVALIDE [Concomitant]
  55. XOPENEX [Concomitant]
  56. POTASSIUM CHLORIDE [Concomitant]

REACTIONS (12)
  - PAIN [None]
  - NEPHROGENIC SYSTEMIC FIBROSIS [None]
  - SKIN HYPOPIGMENTATION [None]
  - INJURY [None]
  - ANXIETY [None]
  - EMOTIONAL DISTRESS [None]
  - MOBILITY DECREASED [None]
  - MUSCULOSKELETAL STIFFNESS [None]
  - PAIN IN EXTREMITY [None]
  - PARAESTHESIA [None]
  - SKIN DISCOLOURATION [None]
  - GENERAL PHYSICAL HEALTH DETERIORATION [None]
